FAERS Safety Report 4529398-0 (Version None)
Quarter: 2004Q4

REPORT INFORMATION
  Report Type: 
  Country: None (occurrence: None)
  Receive Date: 20041215
  Receipt Date: 20041215
  Transmission Date: 20050328
  Serious: Yes (Life-Threatening, Hospitalization, Other)
  Sender: FDA-Public Use
  Company Number: None

PATIENT
  Age: 40 Year
  Sex: Male
  Weight: 82.5547 kg

DRUGS (3)
  1. VIOXX [Suspect]
     Indication: PAIN
  2. CELEBREX [Suspect]
     Indication: INFLAMMATION
     Dosage: PAIN
  3. CELEBREX [Suspect]
     Indication: PAIN
     Dosage: PAIN

REACTIONS (3)
  - HYPOAESTHESIA [None]
  - MYOCARDIAL INFARCTION [None]
  - PALPITATIONS [None]
